FAERS Safety Report 15826940 (Version 1)
Quarter: 2019Q1

REPORT INFORMATION
  Report Type: Spontaneous
  Country: CA (occurrence: CA)
  Receive Date: 20190115
  Receipt Date: 20190115
  Transmission Date: 20190417
  Serious: Yes (Other)
  Sender: FDA-Public Use
  Company Number: CA-PFIZER INC-2018523892

PATIENT
  Age: 68 Year
  Sex: Female

DRUGS (3)
  1. CANNABIS [Concomitant]
     Active Substance: CANNABIS SATIVA SUBSP. INDICA TOP
     Dosage: UNK
  2. SALAZOPYRIN [Suspect]
     Active Substance: SULFASALAZINE
     Dosage: 500 MG, DAILY
     Route: 048
  3. CODEINE [Suspect]
     Active Substance: CODEINE
     Dosage: 30 MG, DAILY (1 TAB AT BEDTIME)
     Route: 048

REACTIONS (2)
  - Type 2 diabetes mellitus [Unknown]
  - Thermal burn [Unknown]
